FAERS Safety Report 7366842-8 (Version None)
Quarter: 2011Q1

REPORT INFORMATION
  Report Type: 
  Country: None (occurrence: None)
  Receive Date: 20110310
  Receipt Date: 20110225
  Transmission Date: 20110831
  Serious: Yes (Hospitalization, Other)
  Sender: FDA-Public Use
  Company Number: 2011MA001467

PATIENT
  Age: 80 Year
  Sex: Male

DRUGS (8)
  1. PAROXETINE TABLETS, 40MG (AELLC) (PAROXETINE) [Suspect]
     Indication: DEPRESSION
     Dosage: 40 MG; ; PO
     Route: 048
     Dates: start: 20100909
  2. DIPYRIDAMOLE [Concomitant]
  3. TAMSULOSIN HCL [Concomitant]
  4. METFORMIN HYDROCHLORIDE [Suspect]
  5. PARACETAMOL [Concomitant]
  6. GLICLAZIDE (GLICLAZIDE) [Suspect]
  7. CO-BENELDOPA [Concomitant]
  8. FERROUS SULFATE TAB [Concomitant]

REACTIONS (2)
  - TYPE 2 DIABETES MELLITUS [None]
  - HYPOGLYCAEMIA [None]
